FAERS Safety Report 22628648 (Version 1)
Quarter: 2023Q2

REPORT INFORMATION
  Report Type: Report from Study
  Country: PE (occurrence: PE)
  Receive Date: 20230622
  Receipt Date: 20230622
  Transmission Date: 20230721
  Serious: Yes (Hospitalization)
  Sender: FDA-Public Use
  Company Number: PE-BAYER-2023A077120

PATIENT
  Age: 72 Year
  Sex: Male

DRUGS (2)
  1. NEXAVAR [Suspect]
     Active Substance: SORAFENIB
     Indication: Hepatocellular carcinoma
     Dosage: 800 MG, QD
     Dates: start: 20211223
  2. NEXAVAR [Suspect]
     Active Substance: SORAFENIB
     Indication: Hepatocellular carcinoma
     Dosage: 400 MG, QD
     Dates: start: 20230609

REACTIONS (4)
  - Haemorrhage [Not Recovered/Not Resolved]
  - Varicose vein ruptured [Not Recovered/Not Resolved]
  - Gastric variceal ligation [None]
  - Abdominal pain [None]

NARRATIVE: CASE EVENT DATE: 20230501
